FAERS Safety Report 4715225-5 (Version None)
Quarter: 2005Q3

REPORT INFORMATION
  Report Type: 
  Country: None (occurrence: None)
  Receive Date: 20050715
  Receipt Date: 20050629
  Transmission Date: 20060218
  Serious: Yes (Hospitalization)
  Sender: FDA-Public Use
  Company Number: JP-ROCHE-409368

PATIENT
  Age: 23 Month
  Sex: Male

DRUGS (2)
  1. TAMIFLU [Suspect]
     Route: 048
     Dates: start: 20050302, end: 20050303
  2. CLARITHROMYCIN [Concomitant]
     Dosage: REPORTED AS DRY SYRUP
     Route: 048
     Dates: start: 20050302, end: 20050303

REACTIONS (8)
  - ERYTHEMA [None]
  - HYPOTHERMIA [None]
  - INFLUENZA [None]
  - NO REACTION ON PREVIOUS EXPOSURE TO DRUG [None]
  - OTITIS MEDIA [None]
  - PHARYNGEAL ERYTHEMA [None]
  - RASH [None]
  - TYMPANIC MEMBRANE HYPERAEMIA [None]
